FAERS Safety Report 7082518-9 (Version None)
Quarter: 2010Q4

REPORT INFORMATION
  Report Type: 
  Country: None (occurrence: None)
  Receive Date: 20101026
  Receipt Date: 20101015
  Transmission Date: 20110411
  Serious: Yes (Disabling)
  Sender: FDA-Public Use
  Company Number: 675723

PATIENT
  Age: 49 Year
  Sex: Male
  Weight: 68.04 kg

DRUGS (33)
  1. VANCOMYCIN HCL [Suspect]
     Indication: STAPHYLOCOCCAL INFECTION
     Dosage: EVERY 24 HOURS, INTRAVENOUS
     Route: 042
     Dates: start: 20070203, end: 20070309
  2. VANCOMYCIN HYDROCHLORIDE [Suspect]
     Indication: STAPHYLOCOCCAL INFECTION
     Dosage: EVERY 24 HOURS, INTRAVENOUS
     Route: 042
     Dates: start: 20070216, end: 20070216
  3. VANCOMYCIN HYDROCHLORIDE [Suspect]
     Indication: STAPHYLOCOCCAL INFECTION
     Dosage: EVERY 24 HOURS, INTRAVENOUS
     Route: 042
     Dates: start: 20070216, end: 20070216
  4. VANCOMYCIN HYDROCHLORIDE [Suspect]
     Indication: STAPHYLOCOCCAL INFECTION
     Dosage: EVERY 24 HOURS, INTRAVENOUS
     Route: 042
     Dates: start: 20070228, end: 20070228
  5. VANCOMYCIN HYDROCHLORIDE [Suspect]
     Indication: STAPHYLOCOCCAL INFECTION
     Dosage: EVERY 24 HOURS, INTRAVENOUS
     Route: 042
     Dates: start: 20070307, end: 20070307
  6. VANCOMYCIN HYDROCHLORIDE [Suspect]
     Indication: STAPHYLOCOCCAL INFECTION
     Dosage: EVERY 24 HOURS, INTRAVENOUS
     Route: 042
     Dates: start: 20070221, end: 20070221
  7. SODIUM CHLORIDE [Concomitant]
  8. HEPARIN [Concomitant]
  9. CLONIDINE [Concomitant]
  10. LISINOPRIL [Concomitant]
  11. LYRICA [Concomitant]
  12. GLUCOPHAGE [Concomitant]
  13. NEXIUM [Concomitant]
  14. OMEPRAZOLE [Concomitant]
  15. KLONOPIN [Concomitant]
  16. INSULIN [Concomitant]
  17. DEXTROSE 5% + 0.45% SOD. CHL. INJ, USP, IN FLEX .PLAS. CONT. (DEXTROSE [Concomitant]
  18. PROTONIX [Concomitant]
  19. AUGMENTIN '125' [Concomitant]
  20. NAFCILLIN [Concomitant]
  21. TYLENOL (CAPLET) [Concomitant]
  22. (RESTORIL /00393701/) [Concomitant]
  23. ZELNORM [Concomitant]
  24. DARVOCET [Concomitant]
  25. AVAPRO [Concomitant]
  26. (ENSURE /06184901/) [Concomitant]
  27. (LEVSIN) [Concomitant]
  28. (VIOKASE /00150201/) [Concomitant]
  29. GLUCOTROL [Concomitant]
  30. DURAGESIC-100 [Concomitant]
  31. DEMEROL (MEPERIDINE HYDROCHLORIDE INJECTION, USP) 100 MG/ML UNI-AMP (M [Concomitant]
  32. LORTAB [Concomitant]
  33. PHENERGAN HCL [Concomitant]

REACTIONS (9)
  - BALANCE DISORDER [None]
  - CONFUSIONAL STATE [None]
  - DEAFNESS NEUROSENSORY [None]
  - DEAFNESS UNILATERAL [None]
  - HEMIPLEGIA [None]
  - MITRAL VALVE INCOMPETENCE [None]
  - PULMONARY HYPERTENSION [None]
  - SOMNOLENCE [None]
  - VERTIGO [None]
